FAERS Safety Report 12584739 (Version 2)
Quarter: 2016Q3

REPORT INFORMATION
  Report Type: Report from Study
  Country: CA (occurrence: CA)
  Receive Date: 20160722
  Receipt Date: 20160803
  Transmission Date: 20161109
  Serious: No
  Sender: FDA-Public Use
  Company Number: CA-ABBVIE-16P-028-1683958-00

PATIENT
  Sex: Female

DRUGS (2)
  1. HOLKIRA PAK [Suspect]
     Active Substance: DASABUVIR\OMBITASVIR\PARITAPREVIR\RITONAVIR
     Indication: HEPATITIS C
     Dosage: TWO - 12.5/75/50 MG QD (AM) AND ONE - 250 MG TWICE DAILY (AM/PM)
     Route: 048
     Dates: start: 20150912
  2. MODERIBA [Suspect]
     Active Substance: RIBAVIRIN
     Indication: HEPATITIS C
     Dosage: 600 MG AM, 400 MG PM
     Route: 048
     Dates: start: 20150912

REACTIONS (1)
  - Drug ineffective [Not Recovered/Not Resolved]
